FAERS Safety Report 6017652-5 (Version None)
Quarter: 2008Q4

REPORT INFORMATION
  Report Type: 
  Country: None (occurrence: None)
  Receive Date: 20081223
  Receipt Date: 20081216
  Transmission Date: 20090506
  Serious: Yes (Other)
  Sender: FDA-Public Use
  Company Number: US-ABBOTT-08P-163-0493251-00

PATIENT
  Sex: Male

DRUGS (6)
  1. HUMIRA [Suspect]
     Indication: CROHN'S DISEASE
     Dosage: LOADING DOSE X1
     Dates: start: 20080601, end: 20080601
  2. HUMIRA [Suspect]
     Indication: CROHN'S DISEASE
     Route: 058
     Dates: start: 20080601
  3. PREDNISONE TAB [Concomitant]
     Indication: CROHN'S DISEASE
     Dosage: WEANED DOWN FROM 30MG QD IN APR 2008
     Route: 048
     Dates: start: 20080401
  4. DIFLUCAN [Concomitant]
     Indication: PROPHYLAXIS
     Route: 050
  5. DIFLUCAN [Concomitant]
     Indication: ORAL CANDIDIASIS
  6. SALINE NASAL RINSE [Concomitant]
     Indication: SINUSITIS

REACTIONS (6)
  - BASAL CELL CARCINOMA [None]
  - ECCHYMOSIS [None]
  - HYPERKERATOSIS [None]
  - ORAL CANDIDIASIS [None]
  - SINUSITIS [None]
  - SKIN PAPILLOMA [None]
